FAERS Safety Report 19281547 (Version 1)
Quarter: 2021Q2

REPORT INFORMATION
  Report Type: Spontaneous
  Country: NL (occurrence: NL)
  Receive Date: 20210521
  Receipt Date: 20210521
  Transmission Date: 20210717
  Serious: Yes (Hospitalization)
  Sender: FDA-Public Use
  Company Number: NL-TEVA-2021-NL-1912528

PATIENT
  Age: 66 Year
  Sex: Female
  Weight: 63 kg

DRUGS (7)
  1. HYDROCHLOORTHIAZIDE TABLET 12,5MG / BRAND NAME NOT SPECIFIED [Suspect]
     Active Substance: HYDROCHLOROTHIAZIDE
     Indication: HYPERTENSION
     Dosage: 12.5 MILLIGRAM DAILY; 1 PIECE, STRENGTH : 12.5 MG, MEDICINE PRESCRIBED BY DOCTOR: YES
     Route: 065
     Dates: start: 2015, end: 20210324
  2. CLOPIDOGREL TABLET   75MG / GREPID TABLET FILMOMHULD 75MG [Concomitant]
     Dosage: UNIT DOSE : 75 MG, THERAPY START DATE AND END DATE : ASKU, STRENGTH : 75 MG
  3. ALENDRONINEZUUR TABLET 70MG / BRAND NAME NOT SPECIFIED [Concomitant]
     Active Substance: ALENDRONIC ACID
     Dosage: UNIT DOSE : 70 MG, THERAPY START DATE AND END DATE : ASKU, STRENGTH : 70 MG
  4. AMLODIPINE TABLET   5MG / BRAND NAME NOT SPECIFIED [Concomitant]
     Active Substance: AMLODIPINE BESYLATE
     Dosage: UNIT DOSE : 5 MG , THERAPY START DATE AND END DATE : ASKU, STRENGTH : 5 MG
  5. CICLESONIDE AEROSOL  80UG/DO / ALVESCO  80 AEROSOL  80MCG/DO SPBS  60D [Concomitant]
     Dosage: AEROSOL,UNIT DOSE : 80 MICROGRAMS PER DOSE, STRENGTH : 80 MICROGRAM, THERAPY START DATE AND END DATE
  6. COLECALCIFEROL / BRAND NAME NOT SPECIFIED [Concomitant]
     Active Substance: CHOLECALCIFEROL
     Dosage: TABLET 20, THERAPY START DATE AND END DATE : ASKU
  7. SIMVASTATINE TABLET FO 40MG / BRAND NAME NOT SPECIFIED [Concomitant]
     Active Substance: SIMVASTATIN
     Dosage: UNIT DOSE : 40 MG, THERAPY START DATE AND END DATE : ASKU, STRENGTH : 40 MG

REACTIONS (4)
  - Cerebrovascular accident [Unknown]
  - Macular fibrosis [Unknown]
  - Asthma [Unknown]
  - Skin cancer [Unknown]

NARRATIVE: CASE EVENT DATE: 20200928
